FAERS Safety Report 21557942 (Version 2)
Quarter: 2022Q4

REPORT INFORMATION
  Report Type: Report from Study
  Country: GR (occurrence: GR)
  Receive Date: 20221106
  Receipt Date: 20221121
  Transmission Date: 20230113
  Serious: Yes (Hospitalization)
  Sender: FDA-Public Use
  Company Number: GR-BIOGEN-2022BI01166796

PATIENT
  Age: 6 Year
  Sex: Male
  Weight: 14 kg

DRUGS (7)
  1. SPINRAZA [Suspect]
     Active Substance: NUSINERSEN
     Indication: Spinal muscular atrophy
     Route: 050
     Dates: start: 20161220
  2. IPRATROPIUM BROMIDE [Concomitant]
     Active Substance: IPRATROPIUM BROMIDE
     Indication: Drug therapy
     Route: 050
     Dates: start: 201703
  3. DOMPERIDONE [Concomitant]
     Active Substance: DOMPERIDONE
     Indication: Gastrointestinal motility disorder
     Dosage: DOMPERIDONE 2 ML 3 TIMES A DAY P.O.S
     Route: 050
     Dates: start: 201803
  4. ESOMEPRAZOLE [Concomitant]
     Active Substance: ESOMEPRAZOLE
     Indication: Gastrooesophageal reflux disease
     Dosage: ESOMEPRAZOLE 10 MG P.O.S DAILY
     Route: 050
     Dates: start: 201803
  5. COLISTIN [Concomitant]
     Active Substance: COLISTIN
     Indication: Antibiotic therapy
     Dosage: COLISTIN 1 000 000 SINCE MAR 2017
     Route: 050
     Dates: start: 201703
  6. GLYCOPYRROLATE [Concomitant]
     Active Substance: GLYCOPYRROLATE
     Indication: Drooling
     Dosage: GLYCOPYRRONIUM BROMIDE P.OS DAILY (DROOLING) SINCE JAN-2022
     Route: 050
     Dates: start: 202201
  7. SCOPOLAMINE [Concomitant]
     Active Substance: SCOPOLAMINE
     Indication: Drug therapy
     Route: 050
     Dates: start: 202209

REACTIONS (1)
  - Respiratory tract infection [Recovered/Resolved]

NARRATIVE: CASE EVENT DATE: 20220929
